FAERS Safety Report 8012526-2 (Version None)
Quarter: 2011Q4

REPORT INFORMATION
  Report Type: 
  Country: None (occurrence: None)
  Receive Date: 20111229
  Receipt Date: 20111220
  Transmission Date: 20120403
  Serious: Yes (Hospitalization)
  Sender: FDA-Public Use
  Company Number: 2007BI011318

PATIENT
  Age: 54 Year
  Sex: Female

DRUGS (3)
  1. AVONEX [Suspect]
     Route: 030
     Dates: start: 20000101
  2. AVONEX [Suspect]
     Indication: MULTIPLE SCLEROSIS
     Route: 030
     Dates: start: 20051201
  3. AVONEX [Suspect]
     Route: 030
     Dates: start: 20051201

REACTIONS (3)
  - FEMUR FRACTURE [None]
  - FRACTURE DELAYED UNION [None]
  - FALL [None]
